FAERS Safety Report 6244884-3 (Version None)
Quarter: 2009Q2

REPORT INFORMATION
  Report Type: 
  Country: None (occurrence: None)
  Receive Date: 20090625
  Receipt Date: 20090616
  Transmission Date: 20091009
  Serious: Yes (Hospitalization)
  Sender: FDA-Public Use
  Company Number: B0579126A

PATIENT
  Sex: Female

DRUGS (6)
  1. ARIXTRA [Suspect]
     Indication: THROMBOSIS PROPHYLAXIS
     Dosage: 2.5MG PER DAY
     Route: 058
     Dates: start: 20090504, end: 20090528
  2. GLUCOPHAGE [Concomitant]
     Dosage: 500MG THREE TIMES PER DAY
     Route: 048
     Dates: start: 20080301
  3. AMLODIPINE [Concomitant]
     Dosage: 5MG PER DAY
     Route: 048
     Dates: start: 20020101, end: 20090525
  4. COTAREG [Concomitant]
     Dosage: 1UNIT PER DAY
     Route: 048
     Dates: start: 20090214, end: 20090525
  5. FORLAX [Concomitant]
     Indication: CONSTIPATION
     Dosage: 1UNIT PER DAY
     Route: 048
     Dates: start: 20090501
  6. PARACETAMOL [Concomitant]
     Indication: DRUG USE FOR UNKNOWN INDICATION
     Dosage: 1G AS REQUIRED
     Route: 048
     Dates: start: 20090401, end: 20090525

REACTIONS (8)
  - ANAEMIA [None]
  - BLOOD UREA INCREASED [None]
  - HAEMATEMESIS [None]
  - HYPOTENSION [None]
  - MELAENA [None]
  - OESOPHAGEAL ULCER HAEMORRHAGE [None]
  - PALLOR [None]
  - TACHYCARDIA [None]
